FAERS Safety Report 14990901 (Version 1)
Quarter: 2018Q2

REPORT INFORMATION
  Report Type: Spontaneous
  Country: US (occurrence: US)
  Receive Date: 20180608
  Receipt Date: 20180608
  Transmission Date: 20180711
  Serious: Yes (Hospitalization, Other)
  Sender: FDA-Public Use
  Company Number: US-ELI_LILLY_AND_COMPANY-US201805014141

PATIENT
  Age: 46 Year
  Sex: Male
  Weight: 127.89 kg

DRUGS (8)
  1. LIPITOR [Concomitant]
     Active Substance: ATORVASTATIN CALCIUM
     Indication: BLOOD CHOLESTEROL INCREASED
     Dosage: UNK, UNKNOWN
     Route: 065
  2. INVOKANA [Suspect]
     Active Substance: CANAGLIFLOZIN
     Indication: TYPE 2 DIABETES MELLITUS
     Dosage: UNK UNK, UNKNOWN
     Route: 048
     Dates: start: 201506, end: 201507
  3. INVOKANA [Suspect]
     Active Substance: CANAGLIFLOZIN
     Dosage: UNK
     Route: 048
     Dates: start: 201604, end: 20160726
  4. METFORMIN [Suspect]
     Active Substance: METFORMIN HYDROCHLORIDE
     Indication: DIABETES MELLITUS
     Route: 065
     Dates: start: 201604
  5. INVOKAMET [Suspect]
     Active Substance: CANAGLIFLOZIN\METFORMIN HYDROCHLORIDE
     Indication: TYPE 2 DIABETES MELLITUS
     Dosage: 2 DF, DAILY
     Route: 048
     Dates: start: 201504
  6. TRULICITY [Suspect]
     Active Substance: DULAGLUTIDE
     Indication: DIABETES MELLITUS
     Dosage: .5 MG, DAILY
     Route: 065
  7. METOPROLOL. [Concomitant]
     Active Substance: METOPROLOL
     Indication: HYPERTENSION
     Dosage: UNK, UNKNOWN
     Route: 065
  8. INVOKAMET [Suspect]
     Active Substance: CANAGLIFLOZIN\METFORMIN HYDROCHLORIDE
     Dosage: UNK
     Route: 048
     Dates: start: 201604, end: 20160726

REACTIONS (4)
  - Diabetic ketoacidosis [Unknown]
  - Renal failure [Unknown]
  - Cerebrovascular accident [Unknown]
  - Acute kidney injury [Recovering/Resolving]

NARRATIVE: CASE EVENT DATE: 201507
